FAERS Safety Report 8960667 (Version 1)
Quarter: 2012Q4

REPORT INFORMATION
  Report Type: 
  Country: NL (occurrence: NL)
  Receive Date: 20121212
  Receipt Date: 20121212
  Transmission Date: 20130627
  Serious: Yes (Hospitalization)
  Sender: FDA-Public Use
  Company Number: NL-PFIZER INC-2012308780

PATIENT
  Age: 56 Year
  Sex: Female
  Weight: 101 kg

DRUGS (7)
  1. GENOTROPIN [Suspect]
     Dosage: 0.4 mg, 1x/day, 7 injections/week
     Route: 058
     Dates: start: 20030930
  2. HYDROCORTISONE [Concomitant]
     Indication: ACTH DECREASED
     Dosage: UNK
     Dates: start: 19850815
  3. LEVOTHYROXINE [Concomitant]
     Indication: UNSPECIFIED HYPOTHYROIDISM
     Dosage: UNK
     Dates: start: 19830701
  4. CALCIUM-SANDOZ [Concomitant]
     Indication: OSTEOPENIA
     Dosage: UNK
     Dates: start: 19891015
  5. CELEBREX [Concomitant]
     Indication: PAIN IN JOINT
     Dosage: UNK
     Dates: start: 20030325
  6. LEVOTHYROXINE SODIUM [Concomitant]
     Indication: TSH DECREASED
     Dosage: UNK
     Dates: start: 20041019
  7. LEVOTHYROXINE SODIUM [Concomitant]
     Indication: PRIMARY HYPOTHYROIDISM

REACTIONS (1)
  - Arthropathy [Unknown]
